FAERS Safety Report 9715871 (Version 1)
Quarter: 2013Q4

REPORT INFORMATION
  Report Type: Spontaneous
  Country: US (occurrence: None)
  Receive Date: 20131126
  Receipt Date: 20131126
  Transmission Date: 20140711
  Serious: No
  Sender: FDA-Public Use
  Company Number: None

PATIENT
  Age: 44 Year
  Sex: Female
  Weight: 65.32 kg

DRUGS (1)
  1. COUMADIN 5MG [Suspect]
     Indication: PULMONARY EMBOLISM
     Dosage: 1/2-1 PILL  ONCE DAILY TAKEN BY MOUTH
     Route: 048
     Dates: start: 20121031, end: 20130430

REACTIONS (1)
  - Anxiety [None]
